FAERS Safety Report 10978543 (Version 5)
Quarter: 2015Q2

REPORT INFORMATION
  Report Type: Spontaneous
  Country: JP (occurrence: JP)
  Receive Date: 20150402
  Receipt Date: 20150519
  Transmission Date: 20150821
  Serious: Yes (Hospitalization, Other)
  Sender: FDA-Public Use
  Company Number: JP-ASTELLAS-2015JP007105

PATIENT
  Age: 81 Year
  Sex: Male

DRUGS (10)
  1. XTANDI [Suspect]
     Active Substance: ENZALUTAMIDE
     Indication: HORMONE-REFRACTORY PROSTATE CANCER
     Route: 048
     Dates: start: 20141209
  2. ZOLADEX [Suspect]
     Active Substance: GOSERELIN ACETATE
     Indication: HORMONE-REFRACTORY PROSTATE CANCER
     Dosage: 10.8 MG, EVERY 3 MONTHS
     Route: 058
     Dates: start: 20121130
  3. ZOLEDRONIC ACID [Concomitant]
     Active Substance: ZOLEDRONIC ACID
     Indication: HORMONE-REFRACTORY PROSTATE CANCER
     Route: 042
     Dates: start: 20140529
  4. ARGAMATE [Concomitant]
     Active Substance: POLYSTYRENE
     Indication: RENAL IMPAIRMENT
     Route: 048
     Dates: start: 20100217, end: 20150325
  5. BAYASPIRIN [Concomitant]
     Active Substance: ASPIRIN
     Indication: MYOCARDIAL INFARCTION
     Route: 048
     Dates: start: 20070130
  6. REZALTAS [Concomitant]
     Active Substance: AZELNIDIPINE\OLMESARTAN MEDOXOMIL
     Indication: MYOCARDIAL INFARCTION
     Route: 048
     Dates: start: 20131103, end: 20150325
  7. HUMALOG [Concomitant]
     Active Substance: INSULIN LISPRO
     Indication: DIABETES MELLITUS
     Dosage: DAILY DOSAGE: 22-6-12
     Route: 058
     Dates: start: 20130430, end: 20150325
  8. NEXIUM [Concomitant]
     Active Substance: ESOMEPRAZOLE MAGNESIUM
     Indication: MYOCARDIAL INFARCTION
     Route: 048
     Dates: start: 20131103
  9. LANTUS [Concomitant]
     Active Substance: INSULIN GLARGINE
     Indication: DIABETES MELLITUS
     Dosage: 0-0-20, ONCE DAILY
     Route: 058
     Dates: start: 20130430, end: 20150325
  10. MAINTATE [Concomitant]
     Active Substance: BISOPROLOL FUMARATE
     Indication: MYOCARDIAL INFARCTION
     Route: 048
     Dates: start: 20131102, end: 20150325

REACTIONS (3)
  - Product size issue [Unknown]
  - Diabetic ketoacidosis [Recovered/Resolved]
  - Intentional product misuse [Unknown]

NARRATIVE: CASE EVENT DATE: 20150325
